FAERS Safety Report 9117068 (Version 1)
Quarter: 2013Q1

REPORT INFORMATION
  Report Type: Spontaneous
  Country: US (occurrence: US)
  Receive Date: 20130225
  Receipt Date: 20130225
  Transmission Date: 20140127
  Serious: Yes (Hospitalization, Other)
  Sender: FDA-Public Use
  Company Number: US-BAYER-2013-021673

PATIENT
  Age: 39 Year
  Sex: Female
  Weight: 61.22 kg

DRUGS (3)
  1. YASMIN [Suspect]
     Dosage: UNK
     Dates: start: 20050331, end: 20051024
  2. VOLTAREN [Concomitant]
     Indication: TENDONITIS
  3. INHALERS [Concomitant]
     Indication: ASTHMA

REACTIONS (5)
  - Venous thrombosis limb [Recovering/Resolving]
  - Thrombophlebitis superficial [Recovering/Resolving]
  - Pulmonary embolism [Recovering/Resolving]
  - Pulmonary embolism [Recovering/Resolving]
  - Cholelithiasis [None]
